FAERS Safety Report 25953259 (Version 2)
Quarter: 2025Q4

REPORT INFORMATION
  Report Type: Spontaneous
  Country: US (occurrence: US)
  Receive Date: 20251023
  Receipt Date: 20251102
  Transmission Date: 20260117
  Serious: No
  Sender: ELI LILLY AND COMPANY
  Company Number: US-ELI_LILLY_AND_COMPANY-US202510019208

PATIENT
  Age: 72 Year
  Sex: Female

DRUGS (3)
  1. ZEPBOUND [Suspect]
     Active Substance: TIRZEPATIDE
     Indication: Weight control
     Dosage: UNK UNK, WEEKLY (1/W)
     Route: 065
     Dates: start: 20250603
  2. ZEPBOUND [Suspect]
     Active Substance: TIRZEPATIDE
     Dosage: UNK UNK, WEEKLY (1/W)
     Route: 065
     Dates: start: 20250603
  3. ELIQUIS [Concomitant]
     Active Substance: APIXABAN
     Indication: Atrial fibrillation
     Dosage: UNK UNK, UNKNOWN
     Route: 065

REACTIONS (3)
  - Injection site swelling [Not Recovered/Not Resolved]
  - Injection site urticaria [Unknown]
  - Injection site pruritus [Not Recovered/Not Resolved]

NARRATIVE: CASE EVENT DATE: 20251007
